FAERS Safety Report 7435675-6 (Version None)
Quarter: 2011Q2

REPORT INFORMATION
  Report Type: 
  Country: None (occurrence: None)
  Receive Date: 20110425
  Receipt Date: 20110414
  Transmission Date: 20111010
  Serious: Yes (Disabling)
  Sender: FDA-Public Use
  Company Number: PHHY2011DK31145

PATIENT
  Sex: Male
  Weight: 75 kg

DRUGS (1)
  1. LANSOPRAZOLE [Suspect]
     Indication: DYSPEPSIA
     Dosage: 30 MG, QD
     Route: 048
     Dates: start: 20100101, end: 20110322

REACTIONS (3)
  - COLITIS MICROSCOPIC [None]
  - DIARRHOEA [None]
  - COLITIS COLLAGENOUS [None]
